FAERS Safety Report 8303709-2 (Version None)
Quarter: 2012Q2

REPORT INFORMATION
  Report Type: 
  Country: None (occurrence: None)
  Receive Date: 20120423
  Receipt Date: 20120419
  Transmission Date: 20120825
  Serious: No
  Sender: FDA-Public Use
  Company Number: US-PFIZER INC-2012098492

PATIENT
  Sex: Male
  Weight: 71 kg

DRUGS (4)
  1. AMLODIPINE BESYLATE [Suspect]
     Dosage: 1 TABLET OF 5MG AND 1 TABLET OF 2.5MG, DAILY
     Route: 048
     Dates: start: 20120301
  2. LOSARTAN POTASSIUM [Concomitant]
     Indication: HYPERTENSION
     Dosage: 100 MG, DAILY
     Route: 048
  3. ALLOPURINOL [Concomitant]
     Dosage: 100 MG, DAILY
     Route: 048
  4. RANITIDINE [Concomitant]
     Dosage: 150 MG, 2X/DAY

REACTIONS (1)
  - CONSTIPATION [None]
